FAERS Safety Report 24374446 (Version 1)
Quarter: 2024Q3

REPORT INFORMATION
  Report Type: Report from Study
  Country: AU (occurrence: AU)
  Receive Date: 20240927
  Receipt Date: 20240927
  Transmission Date: 20241016
  Serious: Yes (Hospitalization, Other)
  Sender: pharmaAND
  Company Number: AU-ROCHE-2856467

PATIENT
  Sex: Male

DRUGS (2)
  1. PEGASYS [Suspect]
     Active Substance: PEGINTERFERON ALFA-2A
     Indication: Erdheim-Chester disease
     Route: 065
  2. COTELLIC [Suspect]
     Active Substance: COBIMETINIB
     Indication: Erdheim-Chester disease
     Route: 065

REACTIONS (8)
  - Renal impairment [Unknown]
  - General physical health deterioration [Recovered/Resolved]
  - Pancytopenia [Unknown]
  - Pyrexia [Unknown]
  - Hyperhidrosis [Unknown]
  - Acne [Unknown]
  - Off label use [Recovered/Resolved]
  - Erdheim-Chester disease [Recovered/Resolved]
